FAERS Safety Report 10264508 (Version 1)
Quarter: 2014Q2

REPORT INFORMATION
  Report Type: Spontaneous
  Country: CH (occurrence: CH)
  Receive Date: 20140627
  Receipt Date: 20140627
  Transmission Date: 20141212
  Serious: Yes (Hospitalization)
  Sender: FDA-Public Use
  Company Number: CH-NOVOPROD-414105

PATIENT
  Age: 80 Year
  Sex: Female

DRUGS (8)
  1. TRESIBA [Suspect]
     Indication: TYPE 1 DIABETES MELLITUS
     Dosage: 14 IU, QD
     Route: 058
     Dates: end: 20140429
  2. NOVORAPID PENFILL [Suspect]
     Indication: TYPE 1 DIABETES MELLITUS
     Dosage: 13 IU, TID (5-4-4-0)
     Route: 058
     Dates: end: 20140429
  3. EPRIL [Concomitant]
     Dosage: 10 MG, QD
     Route: 048
  4. TOREM                              /01036501/ [Concomitant]
     Dosage: 10 MG, QD
     Route: 065
  5. CIPRALEX                           /01588501/ [Concomitant]
     Dosage: UNK
     Route: 065
  6. PLAVIX [Concomitant]
     Dosage: UNK
     Route: 065
  7. EUTHYROX [Concomitant]
     Dosage: UNK
     Route: 065
  8. SORTIS [Concomitant]
     Dosage: UNK
     Route: 065

REACTIONS (2)
  - Hypothermia [Recovered/Resolved]
  - Hypoglycaemic coma [Recovered/Resolved]
